FAERS Safety Report 11532523 (Version 1)
Quarter: 2015Q3

REPORT INFORMATION
  Report Type: Spontaneous
  Country: DE (occurrence: DE)
  Receive Date: 20150921
  Receipt Date: 20150921
  Transmission Date: 20151125
  Serious: Yes (Other)
  Sender: FDA-Public Use
  Company Number: PHHY2015DE111803

PATIENT

DRUGS (18)
  1. PROPOFOL. [Suspect]
     Active Substance: PROPOFOL
     Dosage: 50 MG, UNK
     Route: 042
     Dates: start: 20130702
  2. ATRACURIUM BESILATE [Suspect]
     Active Substance: ATRACURIUM BESYLATE
     Dosage: 30 MG, UNK
     Route: 042
     Dates: start: 20120504
  3. SUFENTANIL [Suspect]
     Active Substance: SUFENTANIL
     Dosage: 50 UG, UNK
     Route: 042
     Dates: start: 20120828
  4. PROPOFOL. [Suspect]
     Active Substance: PROPOFOL
     Dosage: 200 MG, UNK
     Route: 042
     Dates: start: 20120504
  5. SUFENTANIL [Suspect]
     Active Substance: SUFENTANIL
     Dosage: 50 UG, UNK
     Route: 042
     Dates: start: 20130225
  6. ATRACURIUM BESILATE [Suspect]
     Active Substance: ATRACURIUM BESYLATE
     Dosage: 40 MG, UNK
     Route: 042
     Dates: start: 20120828
  7. SUFENTANIL [Suspect]
     Active Substance: SUFENTANIL
     Dosage: 50 UG, UNK
     Route: 042
     Dates: start: 20130702
  8. LORAZEPAM. [Suspect]
     Active Substance: LORAZEPAM
     Indication: PREMEDICATION
     Dosage: 1 MG, AT THE EVENING BEFORE SURGERY.
     Route: 048
  9. PROPOFOL. [Suspect]
     Active Substance: PROPOFOL
     Indication: INDUCTION OF ANAESTHESIA
     Dosage: 150 MG, UNK
     Route: 042
     Dates: start: 20120312
  10. PROPOFOL. [Suspect]
     Active Substance: PROPOFOL
     Dosage: 180 MG, UNK
     Route: 042
     Dates: start: 20120828
  11. SUFENTANIL [Suspect]
     Active Substance: SUFENTANIL
     Indication: INDUCTION OF ANAESTHESIA
     Dosage: 70 UG, UNK
     Route: 042
     Dates: start: 20120312
  12. SUFENTANIL [Suspect]
     Active Substance: SUFENTANIL
     Dosage: 50 UG, UNK
     Route: 042
     Dates: start: 20120504
  13. MIDAZOLAM [Suspect]
     Active Substance: MIDAZOLAM\MIDAZOLAM HYDROCHLORIDE
     Indication: INDUCTION OF ANAESTHESIA
     Dosage: 5 MG, UNK
     Route: 042
     Dates: start: 20130225
  14. ATRACURIUM BESILATE [Suspect]
     Active Substance: ATRACURIUM BESYLATE
     Indication: INDUCTION OF ANAESTHESIA
     Dosage: 50 MG, UNK
     Route: 042
     Dates: start: 20120312
  15. ATRACURIUM BESILATE [Suspect]
     Active Substance: ATRACURIUM BESYLATE
     Dosage: 50 MG, UNK
     Route: 042
     Dates: start: 20130702
  16. PROPOFOL. [Suspect]
     Active Substance: PROPOFOL
     Dosage: 50 MG, UNK
     Route: 042
     Dates: start: 20130225
  17. MIDAZOLAM [Suspect]
     Active Substance: MIDAZOLAM\MIDAZOLAM HYDROCHLORIDE
     Dosage: 5 MG, UNK
     Route: 042
     Dates: start: 20130702
  18. ATRACURIUM BESILATE [Suspect]
     Active Substance: ATRACURIUM BESYLATE
     Dosage: 50 MG, UNK
     Route: 042
     Dates: start: 20130225

REACTIONS (1)
  - Stress cardiomyopathy [Unknown]
